FAERS Safety Report 6973407 (Version 10)
Quarter: 2014Q3

REPORT INFORMATION
  Report Type: Spontaneous
  Country: US (occurrence: US)
  Receive Date: 20090410
  Receipt Date: 20140826
  Transmission Date: 20150326
  Serious: Yes (Hospitalization, Disabling, Other)
  Sender: FDA-Public Use
  Company Number: US-009507513-2008-188696-NL

PATIENT
  Sex: Female
  Weight: 68 kg

DRUGS (6)
  1. NUVARING [Suspect]
     Active Substance: ETHINYL ESTRADIOL\ETONOGESTREL
     Indication: DYSMENORRHOEA
  2. CELEXA [Concomitant]
     Active Substance: CITALOPRAM HYDROBROMIDE
     Indication: PRODUCT USED FOR UNKNOWN INDICATION
     Dosage: 20 MG, QD
     Dates: start: 20000619
  3. NUVARING [Suspect]
     Active Substance: ETHINYL ESTRADIOL\ETONOGESTREL
     Indication: MENORRHAGIA
  4. NUVARING [Suspect]
     Active Substance: ETHINYL ESTRADIOL\ETONOGESTREL
     Indication: CONTRACEPTION
     Dosage: UNK
     Route: 067
     Dates: start: 200311, end: 20041020
  5. ALLEGRA [Concomitant]
     Active Substance: FEXOFENADINE HYDROCHLORIDE
     Indication: PRODUCT USED FOR UNKNOWN INDICATION
     Dosage: 180
     Dates: start: 20010605
  6. IBUPROFEN. [Concomitant]
     Active Substance: IBUPROFEN
     Indication: HEADACHE
     Dosage: DOSE TEXT: 1 TAB OD PRN, FREQUENCY: PRN

REACTIONS (23)
  - Fibrocystic breast disease [Unknown]
  - Nasal obstruction [Unknown]
  - Carpal tunnel decompression [Unknown]
  - Adverse drug reaction [Unknown]
  - Hypercoagulation [Unknown]
  - Pulmonary embolism [Recovered/Resolved with Sequelae]
  - Off label use [Recovered/Resolved]
  - Dehydration [Unknown]
  - Hypophosphataemia [Unknown]
  - Rhinitis [Unknown]
  - Dyspnoea [Unknown]
  - Pulmonary infarction [Unknown]
  - Upper extremity mass [Unknown]
  - Hysterectomy [Unknown]
  - Encephalopathy [Unknown]
  - Liver function test abnormal [Unknown]
  - Deep vein thrombosis [Unknown]
  - Carpal tunnel decompression [Unknown]
  - Syncope [Recovered/Resolved]
  - Renal failure [Recovered/Resolved]
  - Carpal tunnel syndrome [Unknown]
  - Road traffic accident [Unknown]
  - Sinus disorder [Unknown]

NARRATIVE: CASE EVENT DATE: 200311
